FAERS Safety Report 20722360 (Version 2)
Quarter: 2022Q2

REPORT INFORMATION
  Report Type: Spontaneous
  Country: US (occurrence: US)
  Receive Date: 20220418
  Receipt Date: 20220506
  Transmission Date: 20220721
  Serious: Yes (Other)
  Sender: FDA-Public Use
  Company Number: US-009507513-2204USA005980

PATIENT
  Sex: Male
  Weight: 68 kg

DRUGS (1)
  1. KEYTRUDA [Suspect]
     Active Substance: PEMBROLIZUMAB
     Indication: Metastatic malignant melanoma
     Dosage: 400 MILLIGRAMS EVERY 42 DAYS
     Route: 042
     Dates: start: 20220209, end: 20220209

REACTIONS (6)
  - Cachexia [Unknown]
  - Asthenia [Unknown]
  - Malaise [Unknown]
  - Lethargy [Unknown]
  - Decreased appetite [Unknown]
  - Adrenal disorder [Unknown]

NARRATIVE: CASE EVENT DATE: 20220101
